FAERS Safety Report 11958251 (Version 1)
Quarter: 2016Q1

REPORT INFORMATION
  Report Type: Spontaneous
  Country: GB (occurrence: GB)
  Receive Date: 20160126
  Receipt Date: 20160126
  Transmission Date: 20160526
  Serious: Yes (Other)
  Sender: FDA-Public Use
  Company Number: PHHY2016GB005543

PATIENT
  Age: 34 Year
  Sex: Female
  Weight: 68 kg

DRUGS (3)
  1. ZERIT [Suspect]
     Active Substance: STAVUDINE
     Indication: HIV INFECTION
     Dosage: 80 MG, QD
     Route: 048
     Dates: start: 199812, end: 20000927
  2. NEVIRAPINE. [Suspect]
     Active Substance: NEVIRAPINE
     Indication: HIV INFECTION
     Dosage: 400 MG, QD
     Route: 048
     Dates: start: 199911, end: 20000927
  3. VIDEX [Suspect]
     Active Substance: DIDANOSINE
     Indication: HIV INFECTION
     Dosage: 400 MG, QD
     Route: 048
     Dates: start: 199812, end: 20000927

REACTIONS (10)
  - Caesarean section [Unknown]
  - Lipodystrophy acquired [Recovered/Resolved]
  - Pre-eclampsia [Unknown]
  - Pregnancy [Recovered/Resolved]
  - Premature delivery [Unknown]
  - Hepatitis [Recovered/Resolved]
  - Neuropathy peripheral [Recovered/Resolved]
  - Oedema [Recovered/Resolved]
  - Lactic acidosis [Recovered/Resolved]
  - Meconium stain [Unknown]

NARRATIVE: CASE EVENT DATE: 200009
